FAERS Safety Report 21773620 (Version 1)
Quarter: 2022Q4

REPORT INFORMATION
  Report Type: Spontaneous
  Country: SK (occurrence: SK)
  Receive Date: 20221223
  Receipt Date: 20221223
  Transmission Date: 20230113
  Serious: Yes (Death, Other)
  Sender: FDA-Public Use
  Company Number: SK-BRISTOL-MYERS SQUIBB COMPANY-2022-156365

PATIENT
  Age: 59 Year
  Sex: Female

DRUGS (2)
  1. NIVOLUMAB [Suspect]
     Active Substance: NIVOLUMAB
     Indication: Thymic carcinoma
     Dates: start: 201911
  2. RADIATION THERAPY [Suspect]
     Active Substance: RADIATION THERAPY
     Indication: Thymic carcinoma
     Dosage: THREE DIRECT FIELDS 18MVX TECHNIQUE AT 2 GRAY (GY) TO A PLANNED TOTAL DOSE OF 50 GY
     Dates: start: 201911

REACTIONS (2)
  - Myocarditis [Fatal]
  - Off label use [Unknown]
